FAERS Safety Report 8858552 (Version 2)
Quarter: 2012Q4

REPORT INFORMATION
  Report Type: Report from Study
  Country: CA (occurrence: CA)
  Receive Date: 20121024
  Receipt Date: 20121030
  Transmission Date: 20130627
  Serious: Yes (Death, Other)
  Sender: FDA-Public Use
  Company Number: CA-ROCHE-1136901

PATIENT
  Age: 48 Year
  Sex: Female
  Weight: 53.57 kg

DRUGS (10)
  1. BEVACIZUMAB [Suspect]
     Indication: RADIATION NECROSIS
     Route: 042
     Dates: start: 20120529
  2. BEVACIZUMAB [Suspect]
     Indication: LUNG NEOPLASM MALIGNANT
     Route: 042
     Dates: start: 20120910
  3. DIPHENHYDRAMINE HCL [Suspect]
     Indication: PREMEDICATION
     Dosage: once
     Route: 048
     Dates: start: 20120730, end: 20120730
  4. DIPHENHYDRAMINE HCL [Suspect]
     Dosage: once
     Route: 048
     Dates: start: 20120910, end: 20120910
  5. DIPHENHYDRAMINE HCL [Suspect]
     Dosage: once
     Route: 048
     Dates: start: 20121012, end: 20121012
  6. DILANTIN [Concomitant]
  7. DEXAMETHASONE [Concomitant]
  8. PEMETREXED [Concomitant]
  9. METHYLPREDNISOLONE [Concomitant]
     Indication: PREMEDICATION
     Dosage: once
     Route: 042
     Dates: start: 20120730, end: 20120730
  10. METHYLPREDNISOLONE [Concomitant]
     Dosage: once
     Route: 042
     Dates: start: 20120910, end: 20120910

REACTIONS (10)
  - Headache [Recovered/Resolved]
  - Tinnitus [Recovered/Resolved]
  - Excoriation [Recovering/Resolving]
  - Tinnitus [Not Recovered/Not Resolved]
  - Weight increased [Not Recovered/Not Resolved]
  - Asthenia [Not Recovered/Not Resolved]
  - Abasia [Not Recovered/Not Resolved]
  - Somnolence [Unknown]
  - General physical health deterioration [Not Recovered/Not Resolved]
  - Death [Fatal]
